FAERS Safety Report 18822329 (Version 1)
Quarter: 2021Q1

REPORT INFORMATION
  Report Type: Spontaneous
  Country: US (occurrence: US)
  Receive Date: 20210202
  Receipt Date: 20210202
  Transmission Date: 20210419
  Serious: Yes (Other)
  Sender: FDA-Public Use
  Company Number: None

PATIENT
  Age: 72 Year
  Sex: Male
  Weight: 133 kg

DRUGS (22)
  1. FAMOTIDINE. [Concomitant]
     Active Substance: FAMOTIDINE
     Dates: start: 20201227, end: 20210105
  2. SODIUM POLYSTYRENE SULFONATE. [Concomitant]
     Active Substance: SODIUM POLYSTYRENE SULFONATE
     Dates: start: 20210102, end: 20210104
  3. CEFTAZIDIME. [Concomitant]
     Active Substance: CEFTAZIDIME
     Dates: start: 20201226, end: 20201231
  4. CEFEPIME [Concomitant]
     Active Substance: CEFEPIME HYDROCHLORIDE
     Dates: start: 20201224, end: 20201225
  5. METRONIDAZOLE. [Concomitant]
     Active Substance: METRONIDAZOLE
     Dates: start: 20201221, end: 20201228
  6. FENTANYL. [Concomitant]
     Active Substance: FENTANYL
     Dates: start: 20201226, end: 20210106
  7. HEPARIN [Concomitant]
     Active Substance: HEPARIN SODIUM
     Dates: start: 20201221, end: 20210106
  8. MIDAZOLAM. [Concomitant]
     Active Substance: MIDAZOLAM
     Dates: start: 20201226, end: 20210102
  9. REMDESIVIR. [Suspect]
     Active Substance: REMDESIVIR
     Indication: COVID-19
     Route: 042
     Dates: start: 20201224, end: 20201228
  10. DOXYCYCLINE. [Concomitant]
     Active Substance: DOXYCYCLINE
     Dates: start: 20201222, end: 20201229
  11. VANCOMYCIN [Concomitant]
     Active Substance: VANCOMYCIN
     Dates: start: 20201221, end: 20201228
  12. DEXMEDETOMIDINE. [Concomitant]
     Active Substance: DEXMEDETOMIDINE
     Dates: start: 20210103, end: 20210105
  13. SODIUM BICARBONATE. [Concomitant]
     Active Substance: SODIUM BICARBONATE
     Dates: start: 20210106
  14. EPINEPHRINE. [Concomitant]
     Active Substance: EPINEPHRINE
     Dates: start: 20210106
  15. NOREPHINEPHRINE [Concomitant]
     Active Substance: NOREPINEPHRINE\NOREPINEPHRINE BITARTRATE
     Dates: start: 20210106
  16. APIXABAN [Concomitant]
     Active Substance: APIXABAN
     Dates: start: 20201225, end: 20201225
  17. AMIODARONE [Concomitant]
     Active Substance: AMIODARONE
     Dates: start: 20201227, end: 20201228
  18. DEXAMETHASONE. [Concomitant]
     Active Substance: DEXAMETHASONE
     Dates: start: 20201222, end: 20210101
  19. DIGOXIN. [Concomitant]
     Active Substance: DIGOXIN
     Dates: start: 20201227, end: 20201227
  20. INSULIN REGULAR [Concomitant]
     Active Substance: INSULIN NOS
     Dates: start: 20201226, end: 20210106
  21. SULFAMETHOXAZOLE/TRIMETHOPRIM [Concomitant]
     Active Substance: SULFAMETHOXAZOLE\TRIMETHOPRIM
     Dates: start: 20201231, end: 20210102
  22. PHENYLEPHRINE [Concomitant]
     Active Substance: PHENYLEPHRINE HYDROCHLORIDE
     Dates: start: 20201227, end: 20201228

REACTIONS (4)
  - Glomerular filtration rate decreased [None]
  - Death [None]
  - Renal impairment [None]
  - Blood creatinine increased [None]

NARRATIVE: CASE EVENT DATE: 20201226
